FAERS Safety Report 16904443 (Version 3)
Quarter: 2019Q4

REPORT INFORMATION
  Report Type: Spontaneous
  Country: US (occurrence: US)
  Receive Date: 20191010
  Receipt Date: 20191223
  Transmission Date: 20200122
  Serious: Yes (Hospitalization, Other)
  Sender: FDA-Public Use
  Company Number: US-009507513-1910USA008137

PATIENT
  Sex: Female

DRUGS (1)
  1. NEXPLANON [Suspect]
     Active Substance: ETONOGESTREL
     Dosage: 1 ROD
     Route: 059

REACTIONS (4)
  - Ill-defined disorder [Unknown]
  - Central venous catheterisation [Unknown]
  - Complication associated with device [Unknown]
  - Device dislocation [Unknown]

NARRATIVE: CASE EVENT DATE: 20190912
